FAERS Safety Report 25346641 (Version 1)
Quarter: 2025Q2

REPORT INFORMATION
  Report Type: Spontaneous
  Country: ZA (occurrence: ZA)
  Receive Date: 20250522
  Receipt Date: 20250522
  Transmission Date: 20250717
  Serious: Yes (Death, Other)
  Sender: MYLAN
  Company Number: ZA-MYLANLABS-2025M1040517

PATIENT
  Age: 75 Year
  Sex: Male

DRUGS (1)
  1. ATORVASTATIN [Suspect]
     Active Substance: ATORVASTATIN
     Indication: Blood cholesterol abnormal

REACTIONS (4)
  - Cutis rhomboidalis nuchae [Fatal]
  - Hepatic failure [Unknown]
  - Renal failure [Unknown]
  - Muscle atrophy [Unknown]
